FAERS Safety Report 5074868-2 (Version None)
Quarter: 2006Q3

REPORT INFORMATION
  Report Type: 
  Country: None (occurrence: None)
  Receive Date: 20060809
  Receipt Date: 20060802
  Transmission Date: 20061208
  Serious: Yes (Hospitalization)
  Sender: FDA-Public Use
  Company Number: PHRM2006FR02234

PATIENT
  Age: 23 Year
  Sex: Female

DRUGS (3)
  1. GYNERGENE-CAFEINE [Suspect]
     Route: 048
     Dates: end: 20060214
  2. ACTRON                                  /FRA/ [Suspect]
     Route: 048
     Dates: end: 20060214
  3. RIVOTRIL [Suspect]
     Route: 048
     Dates: end: 20060214

REACTIONS (2)
  - DRUG DEPENDENCE [None]
  - HEADACHE [None]
